FAERS Safety Report 4824389-4 (Version None)
Quarter: 2005Q4

REPORT INFORMATION
  Report Type: 
  Country: None (occurrence: None)
  Receive Date: 20051108
  Receipt Date: 20051027
  Transmission Date: 20060501
  Serious: Yes (Hospitalization)
  Sender: FDA-Public Use
  Company Number: 2005149627

PATIENT

DRUGS (1)
  1. LYRICA [Suspect]
     Indication: POLYMYOSITIS

REACTIONS (4)
  - CONFUSIONAL STATE [None]
  - FAECAL INCONTINENCE [None]
  - STUPOR [None]
  - URINARY INCONTINENCE [None]
